FAERS Safety Report 17137202 (Version 3)
Quarter: 2020Q1

REPORT INFORMATION
  Report Type: Spontaneous
  Country: CA (occurrence: CA)
  Receive Date: 20191210
  Receipt Date: 20200129
  Transmission Date: 20200409
  Serious: Yes (Hospitalization, Other)
  Sender: FDA-Public Use
  Company Number: CA-DSJP-DSU-2019-148547

PATIENT

DRUGS (1)
  1. OLMETEC PLUS 40/12.5 [Suspect]
     Active Substance: HYDROCHLOROTHIAZIDE\OLMESARTAN MEDOXOMIL
     Indication: PRODUCT USED FOR UNKNOWN INDICATION
     Dosage: UNK
     Route: 048
     Dates: start: 2013, end: 201804

REACTIONS (18)
  - Diverticulitis [Unknown]
  - Malaise [Unknown]
  - Eye operation [Unknown]
  - Renal failure [Unknown]
  - Foot fracture [Unknown]
  - Abdominal distension [Unknown]
  - Flatulence [Unknown]
  - Angle closure glaucoma [Unknown]
  - Renal neoplasm [Unknown]
  - Urinary tract infection [Unknown]
  - Vision blurred [Unknown]
  - Myopia [Unknown]
  - Colitis [Unknown]
  - Tooth disorder [Unknown]
  - Renal cyst [Unknown]
  - Photophobia [Unknown]
  - Headache [Unknown]
  - Eye pain [Unknown]
